FAERS Safety Report 5226397-0 (Version None)
Quarter: 2006Q4

REPORT INFORMATION
  Report Type: 
  Country: None (occurrence: None)
  Receive Date: 20061201
  Receipt Date: 20061019
  Transmission Date: 20070319
  Serious: No
  Sender: FDA-Public Use
  Company Number: US200610003973

PATIENT
  Sex: Female

DRUGS (1)
  1. CYMBALTA [Suspect]
     Indication: DEPRESSION
     Dosage: 60 MG; 60 MG, DAILY (1/D); 30 MG, DAILY (1/D),
     Dates: start: 20051101

REACTIONS (2)
  - CONSTIPATION [None]
  - DEPRESSION [None]
